FAERS Safety Report 15980554 (Version 4)
Quarter: 2020Q2

REPORT INFORMATION
  Report Type: Spontaneous
  Country: US (occurrence: US)
  Receive Date: 20190219
  Receipt Date: 20200430
  Transmission Date: 20200713
  Serious: Yes (Hospitalization)
  Sender: FDA-Public Use
  Company Number: US-PFIZER INC-2019063958

PATIENT
  Age: 75 Year
  Sex: Female
  Weight: 78 kg

DRUGS (5)
  1. XELJANZ XR [Suspect]
     Active Substance: TOFACITINIB CITRATE
     Indication: RHEUMATOID ARTHRITIS
     Dosage: 11 MG, 1X/DAY
     Dates: start: 20160622
  2. METHOTREXATE. [Concomitant]
     Active Substance: METHOTREXATE
     Dosage: 0.8 ML, WEEKLY
     Dates: start: 201606
  3. METHOTREXATE. [Concomitant]
     Active Substance: METHOTREXATE
     Dosage: 8 MG, WEEKLY
  4. XELJANZ XR [Suspect]
     Active Substance: TOFACITINIB CITRATE
     Dosage: 11MG 1X/DAY (IN THE MORNINGS)
     Route: 048
     Dates: end: 20200324
  5. CODEINE [Concomitant]
     Active Substance: CODEINE
     Dosage: UNK UNK, AS NEEDED(WHEN NEEDED 1 TABLET OR 4 TABLET)
     Dates: start: 201606

REACTIONS (2)
  - Heart rate decreased [Recovering/Resolving]
  - Gait disturbance [Not Recovered/Not Resolved]

NARRATIVE: CASE EVENT DATE: 20191201
